FAERS Safety Report 8779755 (Version 1)
Quarter: 2012Q4

REPORT INFORMATION
  Report Type: 
  Country: US (occurrence: US)
  Receive Date: 20120912
  Receipt Date: 20120912
  Transmission Date: 20130627
  Serious: No
  Sender: FDA-Public Use
  Company Number: US-VERTEX PHARMACEUTICAL INC.-AE-2012-002514

PATIENT
  Age: 51 Year
  Sex: Male
  Weight: 72.73 kg

DRUGS (3)
  1. INCIVEK [Suspect]
     Indication: HEPATITIS C
     Route: 048
     Dates: start: 20111231
  2. COPEGUS [Concomitant]
     Indication: HEPATITIS C
     Dates: start: 20111231
  3. PEGASYS [Concomitant]
     Indication: HEPATITIS C
     Dates: start: 20111231

REACTIONS (2)
  - Dizziness [Not Recovered/Not Resolved]
  - Nausea [Not Recovered/Not Resolved]
